FAERS Safety Report 5047222-7 (Version None)
Quarter: 2006Q3

REPORT INFORMATION
  Report Type: 
  Country: None (occurrence: None)
  Receive Date: 20060703
  Receipt Date: 20060620
  Transmission Date: 20061208
  Serious: Yes (Hospitalization, Other)
  Sender: FDA-Public Use
  Company Number: 2006031909

PATIENT
  Age: 80 Year
  Sex: Female
  Weight: 83.5526 kg

DRUGS (20)
  1. LYRICA [Suspect]
     Indication: PAIN
     Dosage: 225 MG (75 MG, 3 IN 1 D),
     Dates: start: 20060201, end: 20060210
  2. VERELAN (VERAPAMIL HYDROCHLORIDE) [Concomitant]
  3. PREDNISONE TAB [Concomitant]
  4. NORVASC [Concomitant]
  5. LASIX [Concomitant]
  6. LISINOPRIL [Concomitant]
  7. WELLBUTRIN SR [Concomitant]
  8. PREVACID [Concomitant]
  9. COLCHICUM JTL LIQ [Concomitant]
  10. FERROUS SULFATE TAB [Concomitant]
  11. NASONEX [Concomitant]
  12. ADVAIR DISKUS 100/50 [Concomitant]
  13. DUONEB (IPRATROPIUM BRMOIDE, SALBUTAMOL SULFATE) [Concomitant]
  14. DURAGESIC-100 [Concomitant]
  15. ULTRAM [Concomitant]
  16. PENTOXIFYLLINE [Concomitant]
  17. GAVISCON [Concomitant]
  18. ZANTAC [Concomitant]
  19. IMDUR [Concomitant]
  20. K-DUR 10 [Concomitant]

REACTIONS (21)
  - AMNESIA [None]
  - BUNDLE BRANCH BLOCK RIGHT [None]
  - CARDIAC FAILURE CONGESTIVE [None]
  - CATARACT [None]
  - CEREBRAL ATROPHY [None]
  - CEREBROVASCULAR ACCIDENT [None]
  - CHRONIC OBSTRUCTIVE PULMONARY DISEASE [None]
  - COORDINATION ABNORMAL [None]
  - DRUG TOXICITY [None]
  - FACIAL PALSY [None]
  - HYPERKALAEMIA [None]
  - HYPERSOMNIA [None]
  - MENTAL STATUS CHANGES [None]
  - OVERDOSE [None]
  - RENAL FAILURE ACUTE [None]
  - SINUSITIS [None]
  - SOMNOLENCE [None]
  - TACHYCARDIA [None]
  - TRANSIENT ISCHAEMIC ATTACK [None]
  - TREMOR [None]
  - VASODILATATION [None]
